FAERS Safety Report 8362551-7 (Version None)
Quarter: 2012Q2

REPORT INFORMATION
  Report Type: 
  Country: None (occurrence: None)
  Receive Date: 20120514
  Receipt Date: 20120504
  Transmission Date: 20120825
  Serious: Yes (Hospitalization)
  Sender: FDA-Public Use
  Company Number: 2011SP055515

PATIENT
  Age: 54 Year
  Sex: Female

DRUGS (3)
  1. MIRTAZAPINE [Suspect]
     Indication: DEPRESSION
     Dosage: 15 MG;TID;PO
     Route: 048
     Dates: start: 20110501
  2. TERCIAN (CYAMEMAZINE) [Suspect]
     Indication: ANXIETY
     Dosage: 75 MG;QD;PO
     Route: 048
     Dates: start: 20090401
  3. LORAZEPAM [Suspect]
     Indication: DEPRESSION
     Dosage: 3 MG;QD;
     Dates: start: 20110501

REACTIONS (2)
  - JUGULAR VEIN THROMBOSIS [None]
  - THYROID NEOPLASM [None]
